FAERS Safety Report 22205377 (Version 2)
Quarter: 2023Q2

REPORT INFORMATION
  Report Type: Spontaneous
  Country: JP (occurrence: JP)
  Receive Date: 20230413
  Receipt Date: 20230427
  Transmission Date: 20230722
  Serious: Yes (Other)
  Sender: FDA-Public Use
  Company Number: JP-BEH-2023157367

PATIENT
  Age: 1 Year
  Sex: Female

DRUGS (2)
  1. HUMAN IMMUNOGLOBULIN G [Suspect]
     Active Substance: HUMAN IMMUNOGLOBULIN G
     Indication: Kawasaki^s disease
     Dosage: 2000 MILLIGRAM/KILOGRAM
     Route: 042
  2. FLURBIPROFEN [Concomitant]
     Active Substance: FLURBIPROFEN
     Indication: Kawasaki^s disease
     Dosage: 4 MILLIGRAM/KILOGRAM, QD
     Route: 048

REACTIONS (3)
  - Fibrin D dimer increased [Recovered/Resolved]
  - No adverse event [Unknown]
  - Off label use [Unknown]
